FAERS Safety Report 6138288-1 (Version None)
Quarter: 2009Q1

REPORT INFORMATION
  Report Type: 
  Country: None (occurrence: None)
  Receive Date: 20090331
  Receipt Date: 20090323
  Transmission Date: 20090719
  Serious: Yes (Other)
  Sender: FDA-Public Use
  Company Number: PHHY2009CA09284

PATIENT
  Sex: Male

DRUGS (1)
  1. ZOMETA [Suspect]
     Indication: PROSTATE CANCER
     Dosage: 4 MG, EVERY 4 WEEKS
     Route: 042
     Dates: start: 20080616

REACTIONS (6)
  - BONE PAIN [None]
  - CONSTIPATION [None]
  - FATIGUE [None]
  - MALAISE [None]
  - PAIN [None]
  - SPINAL DISORDER [None]
